FAERS Safety Report 6584482-5 (Version None)
Quarter: 2010Q1

REPORT INFORMATION
  Report Type: 
  Country: None (occurrence: None)
  Receive Date: 20100213
  Receipt Date: 20100213
  Transmission Date: 20100710
  Serious: Yes (Hospitalization)
  Sender: FDA-Public Use
  Company Number: None

PATIENT
  Age: 70 Year
  Sex: Female
  Weight: 113.3993 kg

DRUGS (2)
  1. LISINOPRIL [Suspect]
     Indication: BLOOD PRESSURE
     Dates: start: 20081201, end: 20081210
  2. LISINOPRIL [Suspect]
     Indication: BLOOD PRESSURE
     Dates: start: 20081210, end: 20081210

REACTIONS (15)
  - ARTHRALGIA [None]
  - ASTHENIA [None]
  - DIZZINESS [None]
  - DYSPHAGIA [None]
  - DYSPNOEA [None]
  - DYSSTASIA [None]
  - EAR DISCOMFORT [None]
  - FATIGUE [None]
  - HYPOAESTHESIA [None]
  - INFECTION SUSCEPTIBILITY INCREASED [None]
  - MUSCLE SPASMS [None]
  - NAUSEA [None]
  - PARAESTHESIA [None]
  - URINARY INCONTINENCE [None]
  - VISION BLURRED [None]
